FAERS Safety Report 6267732-4 (Version None)
Quarter: 2009Q3

REPORT INFORMATION
  Report Type: 
  Country: None (occurrence: None)
  Receive Date: 20090710
  Receipt Date: 20090619
  Transmission Date: 20100115
  Serious: Yes (Hospitalization, Other)
  Sender: FDA-Public Use
  Company Number: ADE2009-0688

PATIENT
  Age: 59 Year
  Sex: Female

DRUGS (6)
  1. CIPROFLOXACIN [Suspect]
     Indication: RENAL ABSCESS
     Dosage: 1000MG - DAILY - ORAL
     Route: 048
  2. METRONIDAZOLE [Suspect]
     Dosage: 1500MG - DAILY - ORAL
     Route: 048
  3. LAMIVUDINE [Concomitant]
  4. SPIRONOLACTONE [Concomitant]
  5. FUROSEMIDE [Concomitant]
  6. LACTULOSE [Concomitant]

REACTIONS (12)
  - BALLISMUS [None]
  - CARDIAC MURMUR [None]
  - CONFUSIONAL STATE [None]
  - CONTUSION [None]
  - DISTURBANCE IN ATTENTION [None]
  - DYSKINESIA [None]
  - HEPATIC ENCEPHALOPATHY [None]
  - HEPATIC FAILURE [None]
  - INJURY [None]
  - IRRITABILITY [None]
  - MENTAL STATUS CHANGES [None]
  - SPLENOMEGALY [None]
